FAERS Safety Report 22244661 (Version 1)
Quarter: 2023Q2

REPORT INFORMATION
  Report Type: Report from Study
  Country: US (occurrence: US)
  Receive Date: 20230424
  Receipt Date: 20230424
  Transmission Date: 20230721
  Serious: Yes (Other)
  Sender: FDA-Public Use
  Company Number: US-TAKEDA-2022TUS099100

PATIENT
  Sex: Male
  Weight: 54 kg

DRUGS (11)
  1. MOBOCERTINIB [Suspect]
     Active Substance: MOBOCERTINIB
     Indication: Lung neoplasm malignant
     Dosage: 160 MILLIGRAM, QD
     Route: 065
  2. MOBOCERTINIB [Suspect]
     Active Substance: MOBOCERTINIB
     Dosage: 80 MILLIGRAM, QD
     Route: 065
  3. MOBOCERTINIB [Suspect]
     Active Substance: MOBOCERTINIB
     Dosage: 120 MILLIGRAM, QD
     Route: 065
     Dates: start: 20221002, end: 20230413
  4. ASPIRIN [Concomitant]
     Active Substance: ASPIRIN
     Dosage: UNK
     Route: 065
  5. HYDROCORTISONE [Concomitant]
     Active Substance: HYDROCORTISONE
     Indication: Rash
     Dosage: UNK
     Route: 065
  6. HYDROCORTISONE [Concomitant]
     Active Substance: HYDROCORTISONE
     Indication: Pruritus
  7. HYDROCORTISONE [Concomitant]
     Active Substance: HYDROCORTISONE
     Indication: Erythema
  8. DOXYCYCLINE [Concomitant]
     Active Substance: DOXYCYCLINE
     Dosage: UNK
     Route: 065
  9. LOPERAMIDE [Concomitant]
     Active Substance: LOPERAMIDE
     Dosage: UNK
     Route: 065
  10. METAMUCIL [Concomitant]
     Active Substance: PLANTAGO SEED
     Dosage: UNK
     Route: 065
  11. MAGNESIUM OXIDE [Concomitant]
     Active Substance: MAGNESIUM OXIDE
     Dosage: UNK
     Route: 065

REACTIONS (17)
  - Lung neoplasm malignant [Recovering/Resolving]
  - Aggression [Recovering/Resolving]
  - Constipation [Not Recovered/Not Resolved]
  - Skin irritation [Not Recovered/Not Resolved]
  - Dysstasia [Not Recovered/Not Resolved]
  - Acne [Not Recovered/Not Resolved]
  - Erythema [Unknown]
  - Asthenia [Not Recovered/Not Resolved]
  - Anaemia [Unknown]
  - Weight decreased [Recovering/Resolving]
  - Rash [Not Recovered/Not Resolved]
  - Pruritus [Not Recovered/Not Resolved]
  - Vomiting [Recovering/Resolving]
  - Nausea [Recovering/Resolving]
  - Decreased appetite [Unknown]
  - Diarrhoea [Not Recovered/Not Resolved]
  - Incorrect dose administered [Not Recovered/Not Resolved]
